FAERS Safety Report 9893771 (Version 2)
Quarter: 2014Q1

REPORT INFORMATION
  Report Type: Spontaneous
  Country: FR (occurrence: FR)
  Receive Date: 20140213
  Receipt Date: 20140213
  Transmission Date: 20141002
  Serious: Yes (Hospitalization)
  Sender: FDA-Public Use
  Company Number: FR-ABBVIE-13X-056-1098451-00

PATIENT
  Age: 61 Year
  Sex: Female

DRUGS (7)
  1. DEPAKOTE [Suspect]
     Indication: BIPOLAR DISORDER
     Route: 048
     Dates: end: 20130513
  2. RISPERDAL [Suspect]
     Indication: SCHIZOPHRENIA
     Dosage: DAILY
     Route: 048
     Dates: end: 20130513
  3. KEPPRA [Suspect]
     Indication: SCHIZOPHRENIA
     Route: 048
     Dates: end: 20130513
  4. EFFEXOR [Suspect]
     Indication: PRODUCT USED FOR UNKNOWN INDICATION
     Route: 048
     Dates: end: 20130513
  5. VALIUM [Suspect]
     Indication: PRODUCT USED FOR UNKNOWN INDICATION
     Dosage: DAILY
     Route: 048
     Dates: end: 20130513
  6. LEVOTHYROX [Concomitant]
     Indication: PRODUCT USED FOR UNKNOWN INDICATION
  7. MOPRAL [Concomitant]
     Indication: PRODUCT USED FOR UNKNOWN INDICATION

REACTIONS (4)
  - Altered state of consciousness [Not Recovered/Not Resolved]
  - Hyponatraemia [Recovered/Resolved]
  - Disorientation [Unknown]
  - Confusional state [Unknown]
